FAERS Safety Report 9441742 (Version 4)
Quarter: 2013Q3

REPORT INFORMATION
  Report Type: Spontaneous
  Country: GB (occurrence: GB)
  Receive Date: 20130806
  Receipt Date: 20130909
  Transmission Date: 20140515
  Serious: Yes (Hospitalization, Other)
  Sender: FDA-Public Use
  Company Number: GB-MERCK-1308GBR000680

PATIENT
  Age: 37 Year
  Sex: Male

DRUGS (4)
  1. LORATADINE [Suspect]
     Indication: SEASONAL ALLERGY
     Dosage: UNKNOWN
     Route: 048
  2. EPILIM CHRONO [Interacting]
     Indication: EPILEPSY
     Dosage: 500 MG, QD
     Route: 048
     Dates: start: 201307
  3. CETRIZINE [Concomitant]
     Indication: SEASONAL ALLERGY
     Dosage: 10 MG, QD
  4. FLUOXETINE [Concomitant]
     Dosage: 20 MG, QD

REACTIONS (3)
  - Convulsion [Recovered/Resolved]
  - Drug interaction [Unknown]
  - Drug dispensing error [Unknown]
